FAERS Safety Report 5971716-0 (Version None)
Quarter: 2008Q4

REPORT INFORMATION
  Report Type: 
  Country: None (occurrence: None)
  Receive Date: 20081126
  Receipt Date: 20081126
  Transmission Date: 20090506
  Serious: Yes (Hospitalization)
  Sender: FDA-Public Use
  Company Number: None

PATIENT
  Sex: Male
  Weight: 106 kg

DRUGS (2)
  1. FLUOROURACIL [Suspect]
     Dosage: 836 MG
     Dates: end: 20081112
  2. LEUCOVORIN CALCIUM [Suspect]
     Dosage: 836 MG
     Dates: end: 20081112

REACTIONS (1)
  - CELLULITIS [None]
